FAERS Safety Report 6902869-5 (Version None)
Quarter: 2010Q3

REPORT INFORMATION
  Report Type: 
  Country: None (occurrence: None)
  Receive Date: 20100803
  Receipt Date: 20080813
  Transmission Date: 20110219
  Serious: No
  Sender: FDA-Public Use
  Company Number: US-PFIZER INC-2008078398

PATIENT
  Sex: Female
  Weight: 90.7 kg

DRUGS (8)
  1. LYRICA [Suspect]
     Indication: NEUROPATHY PERIPHERAL
     Dates: start: 20080811
  2. LUNESTA [Concomitant]
     Indication: INSOMNIA
  3. BENADRYL [Concomitant]
  4. DIOVANE [Concomitant]
  5. LANTUS [Concomitant]
  6. GLUCOPHAGE [Concomitant]
  7. PREMARIN [Concomitant]
  8. REGLAN [Concomitant]

REACTIONS (1)
  - INSOMNIA [None]
